FAERS Safety Report 7205714-6 (Version None)
Quarter: 2010Q4

REPORT INFORMATION
  Report Type: 
  Country: None (occurrence: None)
  Receive Date: 20101231
  Receipt Date: 20101221
  Transmission Date: 20110411
  Serious: Yes (Death, Hospitalization)
  Sender: FDA-Public Use
  Company Number: US-ACTELION-A-NJ2010-42271

PATIENT

DRUGS (1)
  1. BOSENTAN TABLET UNKNOWN US MG [Suspect]
     Indication: PULMONARY ARTERIAL HYPERTENSION
     Dosage: UNK
     Route: 048
     Dates: start: 20060801, end: 20101207

REACTIONS (5)
  - DYSPNOEA [None]
  - HEPATIC ENZYME INCREASED [None]
  - PANCREATIC ENZYMES INCREASED [None]
  - PNEUMONIA PRIMARY ATYPICAL [None]
  - SYNCOPE [None]
